FAERS Safety Report 8108814-1 (Version None)
Quarter: 2012Q1

REPORT INFORMATION
  Report Type: 
  Country: None (occurrence: None)
  Receive Date: 20120202
  Receipt Date: 20120117
  Transmission Date: 20120608
  Serious: No
  Sender: FDA-Public Use
  Company Number: US-AMGEN-USASP2012003325

PATIENT
  Age: 72 Year
  Sex: Male

DRUGS (1)
  1. ENBREL [Suspect]
     Indication: SCIATIC NERVE INJURY
     Dosage: 50 MG, QWK
     Dates: start: 20111205

REACTIONS (1)
  - MUSCLE SPASMS [None]
